FAERS Safety Report 11362750 (Version 1)
Quarter: 2015Q3

REPORT INFORMATION
  Report Type: Spontaneous
  Country: TR (occurrence: TR)
  Receive Date: 20150810
  Receipt Date: 20150810
  Transmission Date: 20151125
  Serious: Yes (Other)
  Sender: FDA-Public Use
  Company Number: TR-PFIZER INC-2015262825

PATIENT
  Age: 54 Year
  Sex: Male

DRUGS (2)
  1. METHYLPREDNISOLONE SODIUM SUCCINATE. [Suspect]
     Active Substance: METHYLPREDNISOLONE SODIUM SUCCINATE
     Indication: OPTIC ISCHAEMIC NEUROPATHY
     Dosage: 1 G, DAILY
     Route: 042
  2. METHYLPREDNISOLONE. [Suspect]
     Active Substance: METHYLPREDNISOLONE
     Indication: OPTIC ISCHAEMIC NEUROPATHY
     Dosage: 1 MG/KG, DAILY
     Route: 048

REACTIONS (1)
  - Chorioretinopathy [Recovered/Resolved]
